FAERS Safety Report 16461481 (Version 3)
Quarter: 2019Q3

REPORT INFORMATION
  Report Type: Spontaneous
  Country: JP (occurrence: JP)
  Receive Date: 20190620
  Receipt Date: 20190919
  Transmission Date: 20191004
  Serious: Yes (Death, Hospitalization)
  Sender: FDA-Public Use
  Company Number: JP-JNJFOC-20190520235

PATIENT
  Age: 64 Year
  Sex: Male
  Weight: 64 kg

DRUGS (5)
  1. ALOXI [Suspect]
     Active Substance: PALONOSETRON HYDROCHLORIDE
     Indication: PROPHYLAXIS OF NAUSEA AND VOMITING
     Route: 041
     Dates: start: 20190311, end: 20190311
  2. DEXART [Concomitant]
     Active Substance: DEXAMETHASONE SODIUM PHOSPHATE
     Indication: PROPHYLAXIS OF NAUSEA AND VOMITING
     Route: 041
     Dates: start: 20190311, end: 20190311
  3. ALOXI [Suspect]
     Active Substance: PALONOSETRON HYDROCHLORIDE
     Route: 041
     Dates: start: 20190401, end: 20190401
  4. YONDELIS [Suspect]
     Active Substance: TRABECTEDIN
     Indication: MALIGNANT FIBROUS HISTIOCYTOMA METASTATIC
     Route: 041
     Dates: start: 20190311, end: 20190401
  5. DEXART [Concomitant]
     Active Substance: DEXAMETHASONE SODIUM PHOSPHATE
     Route: 041
     Dates: start: 20190401, end: 20190401

REACTIONS (3)
  - Decreased appetite [Unknown]
  - Infection [Unknown]
  - Rhabdomyolysis [Fatal]

NARRATIVE: CASE EVENT DATE: 201904
